FAERS Safety Report 8117828-7 (Version None)
Quarter: 2011Q4

REPORT INFORMATION
  Report Type: 
  Country: None (occurrence: None)
  Receive Date: 20111227
  Receipt Date: 20110825
  Transmission Date: 20120403
  Serious: No
  Sender: FDA-Public Use
  Company Number: PHHY2011US69547

PATIENT
  Age: 43 Year
  Sex: Female
  Weight: 58.5 kg

DRUGS (10)
  1. PRILOSEC [Concomitant]
  2. FISH OIL (FISH OIL) [Concomitant]
  3. DILANTIN [Concomitant]
  4. VITAMIN B12 [Concomitant]
  5. GILENYA [Suspect]
     Indication: MULTIPLE SCLEROSIS
     Dosage: 0.5 MG, QD, ORAL
     Route: 048
     Dates: start: 20110201
  6. OXYBUTYNIN [Concomitant]
  7. VOLTAREN (DICLOFENAC DIETHYLAMINE) [Concomitant]
  8. MULTI-TABS (ASCORBIC ACID, CALCIUM PANTOTHENATE, COBALTOUS SULFATE, CO [Concomitant]
  9. LYRICA [Concomitant]
  10. GABAPENTIN [Concomitant]

REACTIONS (4)
  - HAEMATOCRIT DECREASED [None]
  - LYMPHOCYTE COUNT DECREASED [None]
  - NEUTROPHIL COUNT DECREASED [None]
  - WHITE BLOOD CELL COUNT DECREASED [None]
